FAERS Safety Report 7554399-8 (Version None)
Quarter: 2011Q2

REPORT INFORMATION
  Report Type: 
  Country: None (occurrence: None)
  Receive Date: 20110617
  Receipt Date: 20110601
  Transmission Date: 20111010
  Serious: Yes (Hospitalization)
  Sender: FDA-Public Use
  Company Number: A0698581A

PATIENT
  Age: 61 Year
  Sex: Male
  Weight: 153.2 kg

DRUGS (5)
  1. TOPROL-XL [Concomitant]
  2. ALTACE [Concomitant]
  3. GLUCOTROL [Concomitant]
  4. ZOCOR [Concomitant]
  5. AVANDIA [Suspect]
     Dosage: 8MG PER DAY
     Route: 048
     Dates: start: 19990101, end: 20061101

REACTIONS (2)
  - CARDIAC DISORDER [None]
  - MYOCARDIAL INFARCTION [None]
